FAERS Safety Report 12903393 (Version 1)
Quarter: 2016Q4

REPORT INFORMATION
  Report Type: Spontaneous
  Country: US (occurrence: US)
  Receive Date: 20161102
  Receipt Date: 20161102
  Transmission Date: 20170207
  Serious: Yes (Other)
  Sender: FDA-Public Use
  Company Number: US-BAYER-2016-205295

PATIENT
  Sex: Male

DRUGS (1)
  1. CIPRO [Suspect]
     Active Substance: CIPROFLOXACIN HYDROCHLORIDE
     Indication: SINUSITIS
     Dosage: UNK

REACTIONS (10)
  - Anxiety [None]
  - Feeling abnormal [None]
  - Pain [None]
  - Dizziness [None]
  - Insomnia [None]
  - Arthralgia [None]
  - Nausea [None]
  - Asthenia [None]
  - Restless legs syndrome [None]
  - Vision blurred [None]
